FAERS Safety Report 7816441-6 (Version None)
Quarter: 2011Q4

REPORT INFORMATION
  Report Type: 
  Country: None (occurrence: None)
  Receive Date: 20111017
  Receipt Date: 20111004
  Transmission Date: 20120403
  Serious: No
  Sender: FDA-Public Use
  Company Number: US-JNJFOC-20111002596

PATIENT
  Sex: Female

DRUGS (6)
  1. FENTANYL-100 [Suspect]
     Dosage: (NDC# 0781-7240-55)
     Route: 062
     Dates: start: 20110927
  2. FENTANYL-100 [Suspect]
     Dosage: (NDC# 0781-7240-55)
     Route: 062
     Dates: start: 20110927
  3. FENTANYL-100 [Suspect]
     Indication: NEUROPATHY PERIPHERAL
     Dosage: NDC#0781-7240-55
     Route: 062
     Dates: end: 20110927
  4. FENTANYL-100 [Suspect]
     Indication: FIBROMYALGIA
     Dosage: NDC#0781-7240-55
     Route: 062
     Dates: end: 20110927
  5. FENTANYL-100 [Suspect]
     Indication: SURGERY
     Dosage: NDC#0781-7240-55
     Route: 062
     Dates: end: 20110927
  6. FENTANYL-100 [Suspect]
     Dosage: (NDC# 0781-7240-55)
     Route: 062
     Dates: start: 20110927

REACTIONS (6)
  - HYPERHIDROSIS [None]
  - PRODUCT QUALITY ISSUE [None]
  - PAIN [None]
  - WRONG TECHNIQUE IN DRUG USAGE PROCESS [None]
  - DRUG ADMINISTERED AT INAPPROPRIATE SITE [None]
  - FALL [None]
